FAERS Safety Report 14795809 (Version 2)
Quarter: 2018Q3

REPORT INFORMATION
  Report Type: Report from Study
  Country: US (occurrence: US)
  Receive Date: 20180423
  Receipt Date: 20180719
  Transmission Date: 20181010
  Serious: Yes (Other)
  Sender: FDA-Public Use
  Company Number: US-AMGEN-USASL2018019004

PATIENT
  Age: 55 Year
  Sex: Male
  Weight: 118.37 kg

DRUGS (15)
  1. PLAVIX [Concomitant]
     Active Substance: CLOPIDOGREL BISULFATE
     Dosage: 75 MG, QD
     Route: 048
  2. LANTUS [Concomitant]
     Active Substance: INSULIN GLARGINE
     Dosage: 100 UNK, BID
  3. LOPRESSOR [Concomitant]
     Active Substance: METOPROLOL TARTRATE
     Dosage: 25 MG, BID
     Route: 048
  4. VITAMIN D3 [Concomitant]
     Active Substance: CHOLECALCIFEROL
     Dosage: 5000 UNIT, QD
     Route: 048
  5. HYZAAR [Concomitant]
     Active Substance: HYDROCHLOROTHIAZIDE\LOSARTAN POTASSIUM
     Dosage: 50?12.5 MG, QD
     Route: 048
  6. FLAXSEED [Concomitant]
     Active Substance: FLAX SEED
     Dosage: UNK UNK, QD
     Route: 048
  7. REPATHA [Suspect]
     Active Substance: EVOLOCUMAB
     Indication: HYPERCHOLESTEROLAEMIA
     Dosage: 140 MG, Q2WK
     Route: 065
     Dates: start: 20180209, end: 2018
  8. REPATHA [Suspect]
     Active Substance: EVOLOCUMAB
     Dosage: 420 MG, QMO
     Route: 058
     Dates: start: 201801
  9. CLARITIN [Concomitant]
     Active Substance: LORATADINE
     Indication: HYPERSENSITIVITY
     Dosage: 10 MG, QD
     Route: 048
  10. EMPAGLIFLOZIN [Concomitant]
     Active Substance: EMPAGLIFLOZIN
     Dosage: 10 MG, QD
     Route: 048
  11. HUMALOG [Concomitant]
     Active Substance: INSULIN LISPRO
     Dosage: 100 UNK, UNK
  12. ASPIRIN. [Concomitant]
     Active Substance: ASPIRIN
     Dosage: 81 MG, QD
     Route: 048
  13. GLUCOTROL [Concomitant]
     Active Substance: GLIPIZIDE
     Dosage: 10 MG, BID
     Route: 048
  14. NIACIN. [Concomitant]
     Active Substance: NIACIN
     Dosage: 500 MG, BID
     Route: 048
  15. VITAMIN E [Concomitant]
     Active Substance: .ALPHA.-TOCOPHEROL
     Dosage: 400 UNIT, QD
     Route: 048

REACTIONS (3)
  - Joint stiffness [Unknown]
  - Injection site swelling [Recovered/Resolved]
  - Skin reaction [Unknown]

NARRATIVE: CASE EVENT DATE: 2018
